FAERS Safety Report 22137731 (Version 1)
Quarter: 2023Q1

REPORT INFORMATION
  Report Type: Report from Study
  Country: US (occurrence: US)
  Receive Date: 20230325
  Receipt Date: 20230325
  Transmission Date: 20230417
  Serious: No
  Sender: FDA-Public Use
  Company Number: US-002147023-NVSC2023US065666

PATIENT
  Age: 82 Year
  Sex: Male

DRUGS (1)
  1. AFINITOR [Suspect]
     Active Substance: EVEROLIMUS
     Indication: Product used for unknown indication
     Dosage: 10 MG
     Route: 065
     Dates: start: 20230308, end: 20230317

REACTIONS (12)
  - Chest discomfort [Unknown]
  - Pain [Unknown]
  - Oral discomfort [Unknown]
  - Nasopharyngitis [Unknown]
  - Rash [Unknown]
  - Joint dislocation [Unknown]
  - Pain in jaw [Unknown]
  - Oropharyngeal pain [Unknown]
  - Arthralgia [Unknown]
  - Rash macular [Unknown]
  - Cough [Unknown]
  - Chest pain [Unknown]

NARRATIVE: CASE EVENT DATE: 20230308
